FAERS Safety Report 6842856-9 (Version None)
Quarter: 2010Q3

REPORT INFORMATION
  Report Type: 
  Country: None (occurrence: None)
  Receive Date: 20100714
  Receipt Date: 20070809
  Transmission Date: 20110219
  Serious: No
  Sender: FDA-Public Use
  Company Number: US-PFIZER INC-2007067330

PATIENT
  Sex: Male
  Weight: 99.545 kg

DRUGS (6)
  1. CHANTIX [Suspect]
     Indication: SMOKING CESSATION THERAPY
     Dates: start: 20070101, end: 20070101
  2. ZYRTEC [Concomitant]
     Indication: SINUS DISORDER
  3. ZESTRIL [Concomitant]
     Indication: HYPERTENSION
  4. ATROVENT [Concomitant]
  5. XANAX [Concomitant]
  6. DARVOCET [Concomitant]

REACTIONS (3)
  - ASTHENIA [None]
  - NAUSEA [None]
  - WEIGHT INCREASED [None]
